FAERS Safety Report 6600150-5 (Version None)
Quarter: 2010Q1

REPORT INFORMATION
  Report Type: 
  Country: None (occurrence: None)
  Receive Date: 20100224
  Receipt Date: 20100218
  Transmission Date: 20100710
  Serious: Yes (Other)
  Sender: FDA-Public Use
  Company Number: A0832012A

PATIENT
  Age: 25 Year
  Sex: Female
  Weight: 77.3 kg

DRUGS (5)
  1. LAMICTAL CD [Suspect]
     Indication: PARTIAL SEIZURES
     Route: 048
     Dates: start: 20010401
  2. CLINDAMYCIN [Suspect]
     Route: 065
  3. FOLIC ACID [Concomitant]
     Indication: ILL-DEFINED DISORDER
     Dosage: 1MG PER DAY
  4. ALLERGY MEDICATION [Concomitant]
  5. IBUPROFEN [Concomitant]

REACTIONS (14)
  - AMNESIA [None]
  - CLOSTRIDIAL INFECTION [None]
  - COGNITIVE DISORDER [None]
  - CONVULSION [None]
  - DELIVERY [None]
  - DERMATITIS ALLERGIC [None]
  - DRUG EXPOSURE DURING PREGNANCY [None]
  - DYSCALCULIA [None]
  - FATIGUE [None]
  - HEADACHE [None]
  - MEMORY IMPAIRMENT [None]
  - SOMNOLENCE [None]
  - TREATMENT NONCOMPLIANCE [None]
  - TREMOR [None]
